FAERS Safety Report 4981434-3 (Version None)
Quarter: 2006Q2

REPORT INFORMATION
  Report Type: 
  Country: None (occurrence: None)
  Receive Date: 20060419
  Receipt Date: 20060405
  Transmission Date: 20061013
  Serious: Yes (Life-Threatening, Hospitalization)
  Sender: FDA-Public Use
  Company Number: US-2006-001946

PATIENT
  Age: 55 Year
  Sex: Female
  Weight: 70.3 kg

DRUGS (1)
  1. MAGNEVIST [Suspect]
     Indication: NUCLEAR MAGNETIC RESONANCE IMAGING
     Dosage: 15 ML, 1 DOSE, INTRAVENOUS
     Route: 042
     Dates: start: 20060131, end: 20060131

REACTIONS (9)
  - ANAPHYLACTIC SHOCK [None]
  - CARDIAC ARREST [None]
  - CHRONIC OBSTRUCTIVE PULMONARY DISEASE [None]
  - CONTRAST MEDIA REACTION [None]
  - CORONARY ARTERY DISEASE [None]
  - HYPOXIA [None]
  - RESPIRATORY ARREST [None]
  - RETCHING [None]
  - URINARY TRACT INFECTION [None]
